FAERS Safety Report 9657215 (Version 1)
Quarter: 2013Q4

REPORT INFORMATION
  Report Type: Spontaneous
  Country: US (occurrence: US)
  Receive Date: 20131030
  Receipt Date: 20131030
  Transmission Date: 20140711
  Serious: No
  Sender: FDA-Public Use
  Company Number: US-PFIZER INC-2013305262

PATIENT
  Age: 30 Year
  Sex: Male

DRUGS (1)
  1. PRISTIQ [Suspect]
     Dosage: UNK

REACTIONS (10)
  - Drug ineffective [Unknown]
  - Asthenia [Unknown]
  - Fatigue [Unknown]
  - Apathy [Unknown]
  - Social avoidant behaviour [Unknown]
  - Psychiatric symptom [Unknown]
  - Feelings of worthlessness [Unknown]
  - Feeling guilty [Unknown]
  - Negative thoughts [Unknown]
  - Depressed mood [Unknown]
